APPROVED DRUG PRODUCT: EPINASTINE HYDROCHLORIDE
Active Ingredient: EPINASTINE HYDROCHLORIDE
Strength: 0.05%
Dosage Form/Route: SOLUTION/DROPS;OPHTHALMIC
Application: A090870 | Product #001
Applicant: PHARMOBEDIENT CONSULTING LLC
Approved: Mar 14, 2011 | RLD: No | RS: No | Type: DISCN